FAERS Safety Report 10682809 (Version 1)
Quarter: 2014Q4

REPORT INFORMATION
  Report Type: Spontaneous
  Country: US (occurrence: US)
  Receive Date: 20141230
  Receipt Date: 20141230
  Transmission Date: 20150529
  Serious: Yes (Hospitalization)
  Sender: FDA-Public Use
  Company Number: US-JNJFOC-20141214814

PATIENT
  Sex: Female

DRUGS (3)
  1. CLOZAPINE. [Concomitant]
     Active Substance: CLOZAPINE
     Route: 065
  2. INVEGA SUSTENNA [Suspect]
     Active Substance: PALIPERIDONE PALMITATE
     Indication: PRODUCT USED FOR UNKNOWN INDICATION
     Route: 030
  3. COGENTIN [Concomitant]
     Active Substance: BENZTROPINE MESYLATE
     Route: 065

REACTIONS (3)
  - Hospitalisation [Unknown]
  - Social avoidant behaviour [Unknown]
  - Depersonalisation [Unknown]
